FAERS Safety Report 9068310 (Version 1)
Quarter: 2013Q1

REPORT INFORMATION
  Report Type: Report from Study
  Country: CA (occurrence: CA)
  Receive Date: 20130128
  Receipt Date: 20130128
  Transmission Date: 20140127
  Serious: Yes (Other)
  Sender: FDA-Public Use
  Company Number: CA-ROCHE-1183553

PATIENT
  Age: 47 Year
  Sex: Female
  Weight: 87 kg

DRUGS (9)
  1. ACTEMRA [Suspect]
     Indication: SERONEGATIVE ARTHRITIS
     Route: 042
     Dates: start: 20130122
  2. RANITIDINE [Concomitant]
     Route: 065
  3. CELEXA [Concomitant]
     Route: 065
  4. AMITRIPTYLINE [Concomitant]
     Route: 065
  5. FENTANYL PATCH [Concomitant]
     Route: 065
  6. ARAVA [Concomitant]
     Route: 065
  7. MORPHINE IMMEDIATE RELEASE [Concomitant]
     Dosage: 100 TO 200 MG AS REQUIRED.
     Route: 065
  8. BENADRYL [Concomitant]
     Indication: PREMEDICATION
     Route: 048
     Dates: start: 20130122, end: 20130122
  9. CLARITIN [Concomitant]
     Indication: PREMEDICATION
     Route: 065
     Dates: start: 20130122

REACTIONS (4)
  - Throat tightness [Recovered/Resolved]
  - Chest discomfort [Recovered/Resolved]
  - Dysgeusia [Recovered/Resolved]
  - Swollen tongue [Recovered/Resolved]
